FAERS Safety Report 16243257 (Version 1)
Quarter: 2019Q2

REPORT INFORMATION
  Report Type: Spontaneous
  Country: US (occurrence: US)
  Receive Date: 20190322
  Receipt Date: 20190322
  Transmission Date: 20190711
  Serious: No
  Sender: FDA-Public Use
  Company Number: None

PATIENT
  Age: 28 Year
  Sex: Female

DRUGS (1)
  1. TEMOZOLOMIDE 100MG CAP [Suspect]
     Active Substance: TEMOZOLOMIDE
     Indication: BRAIN NEOPLASM MALIGNANT
     Route: 048
     Dates: start: 20180410

REACTIONS (7)
  - Animal bite [None]
  - Nasopharyngitis [None]
  - Sinusitis [None]
  - Partial seizures [None]
  - Stress [None]
  - Shunt malfunction [None]
  - Skin laceration [None]

NARRATIVE: CASE EVENT DATE: 20190315
